FAERS Safety Report 5870707-8 (Version None)
Quarter: 2008Q3

REPORT INFORMATION
  Report Type: 
  Country: None (occurrence: None)
  Receive Date: 20080904
  Receipt Date: 20080904
  Transmission Date: 20090109
  Serious: Yes (Hospitalization, Disabling)
  Sender: FDA-Public Use
  Company Number: PHEH1997US03492

PATIENT
  Sex: Female
  Weight: 79.5 kg

DRUGS (7)
  1. NEORAL [Suspect]
     Route: 048
     Dates: start: 19950828
  2. IMURAN [Concomitant]
  3. PREDNISONE [Concomitant]
  4. TENORMIN [Concomitant]
  5. PEPCID AC [Concomitant]
  6. CARAFATE [Concomitant]
  7. REGLAN [Concomitant]

REACTIONS (3)
  - AZOTAEMIA [None]
  - DIABETES MELLITUS [None]
  - URINARY TRACT INFECTION [None]
